FAERS Safety Report 5042650-8 (Version None)
Quarter: 2006Q3

REPORT INFORMATION
  Report Type: 
  Country: None (occurrence: None)
  Receive Date: 20060705
  Receipt Date: 20060602
  Transmission Date: 20061208
  Serious: Yes (Death)
  Sender: FDA-Public Use
  Company Number: FR-SANOFI-SYNTHELABO-A02200601471

PATIENT
  Sex: Male
  Weight: 64 kg

DRUGS (5)
  1. ELOXATIN [Suspect]
     Indication: RECTAL CANCER METASTATIC
     Route: 042
     Dates: start: 20060530, end: 20060530
  2. CALCIUM LEVOFOLINATE [Concomitant]
  3. FLUOROURACIL [Concomitant]
  4. DETENTIEL [Concomitant]
     Indication: ATRIAL FLUTTER
     Route: 048
  5. FLECAINIDE ACETATE [Concomitant]
     Indication: ATRIAL FLUTTER
     Route: 048

REACTIONS (2)
  - CARDIAC ARREST [None]
  - SUDDEN DEATH [None]
